FAERS Safety Report 12507577 (Version 1)
Quarter: 2016Q2

REPORT INFORMATION
  Report Type: Spontaneous
  Country: US (occurrence: None)
  Receive Date: 20160628
  Receipt Date: 20160628
  Transmission Date: 20160815
  Serious: Yes (Disabling)
  Sender: FDA-Public Use
  Company Number: None

PATIENT
  Age: 41 Year
  Sex: Female
  Weight: 65.77 kg

DRUGS (1)
  1. LEVAQUIN [Suspect]
     Active Substance: LEVOFLOXACIN
     Indication: SINUSITIS
     Route: 048
     Dates: start: 20160506, end: 20160513

REACTIONS (8)
  - Muscular weakness [None]
  - Mobility decreased [None]
  - Impaired work ability [None]
  - Arthralgia [None]
  - Fine motor skill dysfunction [None]
  - Grip strength decreased [None]
  - Tendon pain [None]
  - Paraesthesia [None]

NARRATIVE: CASE EVENT DATE: 20160506
